FAERS Safety Report 5109115-6 (Version None)
Quarter: 2006Q3

REPORT INFORMATION
  Report Type: 
  Country: None (occurrence: None)
  Receive Date: 20060920
  Receipt Date: 20051209
  Transmission Date: 20061208
  Serious: Yes (Hospitalization)
  Sender: FDA-Public Use
  Company Number: DE-ROCHE-427985

PATIENT
  Age: 66 Year
  Sex: Female

DRUGS (5)
  1. MYCOPHENOLATE MOFETIL [Suspect]
     Route: 048
     Dates: start: 20050908
  2. FK506 [Suspect]
     Route: 048
     Dates: start: 20050908
  3. DECORTIN-H [Concomitant]
     Route: 048
     Dates: start: 20050908
  4. URBASON [Concomitant]
  5. ANTIBIOTIC NOS [Concomitant]

REACTIONS (2)
  - GLOMERULONEPHRITIS [None]
  - KIDNEY TRANSPLANT REJECTION [None]
